FAERS Safety Report 21397474 (Version 1)
Quarter: 2022Q3

REPORT INFORMATION
  Report Type: Report from Study
  Country: US (occurrence: US)
  Receive Date: 20220930
  Receipt Date: 20220930
  Transmission Date: 20221027
  Serious: Yes (Death, Other)
  Sender: FDA-Public Use
  Company Number: US-BAYER-2022A132358

PATIENT
  Age: 24 Year
  Sex: Male

DRUGS (1)
  1. ASPIRIN [Suspect]
     Active Substance: ASPIRIN

REACTIONS (4)
  - Toxicity to various agents [Fatal]
  - Coma [Fatal]
  - Seizure [Fatal]
  - Acute kidney injury [Fatal]
